FAERS Safety Report 13460873 (Version 1)
Quarter: 2017Q2

REPORT INFORMATION
  Report Type: Spontaneous
  Country: US (occurrence: US)
  Receive Date: 20170420
  Receipt Date: 20170420
  Transmission Date: 20170830
  Serious: Yes (Other)
  Sender: FDA-Public Use
  Company Number: US-AMGEN-USASP2017057904

PATIENT
  Sex: Female
  Weight: 78.5 kg

DRUGS (3)
  1. XELJANZ XR [Concomitant]
     Active Substance: TOFACITINIB CITRATE
     Indication: PRODUCT USED FOR UNKNOWN INDICATION
     Dosage: 11 MG, UNK
     Route: 065
  2. ENBREL [Suspect]
     Active Substance: ETANERCEPT
     Indication: PRODUCT USED FOR UNKNOWN INDICATION
     Dosage: UNK, QWK
     Route: 065
     Dates: start: 2016, end: 2017
  3. METHOTREXATE. [Suspect]
     Active Substance: METHOTREXATE
     Indication: RHEUMATOID ARTHRITIS
     Dosage: UNK UNK, QWK (8 OR 9 ML)
     Route: 065
     Dates: start: 2013, end: 201703

REACTIONS (7)
  - Tuberculosis [Unknown]
  - Abdominal pain upper [Unknown]
  - Feeling abnormal [Unknown]
  - Decreased immune responsiveness [Unknown]
  - Pruritus [Unknown]
  - Nausea [Unknown]
  - Adverse drug reaction [Unknown]
